FAERS Safety Report 9795599 (Version 1)
Quarter: 2014Q1

REPORT INFORMATION
  Report Type: Spontaneous
  Country: GB (occurrence: GB)
  Receive Date: 20140103
  Receipt Date: 20140103
  Transmission Date: 20141002
  Serious: Yes (Hospitalization)
  Sender: FDA-Public Use
  Company Number: GB-UCBSA-107871

PATIENT
  Age: 50 Year
  Sex: Male

DRUGS (3)
  1. KEPPRA [Suspect]
     Dosage: 2000 DAILY
  2. EPILIM CHRONO [Concomitant]
     Dosage: 2500 DAILY
  3. LAMOTRIGINE [Concomitant]
     Dosage: 200 DAILY

REACTIONS (2)
  - Status epilepticus [Recovering/Resolving]
  - Drug ineffective [Unknown]
